FAERS Safety Report 6761522-1 (Version None)
Quarter: 2010Q2

REPORT INFORMATION
  Report Type: 
  Country: None (occurrence: None)
  Receive Date: 20100607
  Receipt Date: 20100520
  Transmission Date: 20101027
  Serious: Yes (Other)
  Sender: FDA-Public Use
  Company Number: BVT-000552

PATIENT
  Age: 34 Year
  Sex: Female

DRUGS (1)
  1. ANAKINRA [Suspect]
     Indication: ACUTE MYOCARDIAL INFARCTION
     Dosage: 100 MG QD SUBCUTANEOUS
     Route: 058

REACTIONS (2)
  - ACUTE CORONARY SYNDROME [None]
  - INJECTION SITE PAIN [None]
